FAERS Safety Report 8905708 (Version 3)
Quarter: 2012Q4

REPORT INFORMATION
  Report Type: 
  Country: US (occurrence: US)
  Receive Date: 20121113
  Receipt Date: 20121206
  Transmission Date: 20130627
  Serious: Yes (Death, Hospitalization)
  Sender: FDA-Public Use
  Company Number: US-009507513-1211USA004428

PATIENT
  Age: 69 Year
  Sex: Female
  Weight: 53.5 kg

DRUGS (6)
  1. VORINOSTAT [Suspect]
     Indication: B-CELL LYMPHOMA
     Dosage: 400 mg, qd on days 1-14, Cycle 21 days
     Route: 048
     Dates: start: 20120926, end: 20121009
  2. VORINOSTAT [Suspect]
     Dosage: 400 mg, qd on days 1-14, Cycle 21 days
     Route: 048
     Dates: start: 20121017, end: 20121030
  3. MLN8237 [Suspect]
     Indication: B-CELL LYMPHOMA
     Dosage: 30 mg, bid on days 1-7, Cycle 21 days
     Route: 048
     Dates: start: 20120926, end: 20121002
  4. MLN8237 [Suspect]
     Dosage: 30 mg, bid on days 1-7, Cycle 21 days
     Route: 048
     Dates: start: 20121017, end: 20121023
  5. MAGNESIUM CITRATE [Concomitant]
  6. CYCLOPHOSPHAMIDE (+) DOXORUBICIN (+) PREDNISONE (+) VINCRISTINE SULFAT [Concomitant]

REACTIONS (3)
  - Gastric haemorrhage [Unknown]
  - Anaemia [Recovered/Resolved]
  - Restrictive cardiomyopathy [Fatal]
